FAERS Safety Report 9167431 (Version 1)
Quarter: 2013Q1

REPORT INFORMATION
  Report Type: Spontaneous
  Country: US (occurrence: None)
  Receive Date: 20130304
  Receipt Date: 20130304
  Transmission Date: 20140127
  Serious: Yes (Life-Threatening, Other)
  Sender: FDA-Public Use
  Company Number: 2013P1002602

PATIENT
  Age: 44 Year
  Sex: Female

DRUGS (1)
  1. HEPARIN [Suspect]
     Indication: BUDD-CHIARI SYNDROME
     Route: 042

REACTIONS (2)
  - Heparin-induced thrombocytopenia [None]
  - Thrombosis [None]
